FAERS Safety Report 10206338 (Version 3)
Quarter: 2015Q2

REPORT INFORMATION
  Report Type: Report from Study
  Country: ML (occurrence: ML)
  Receive Date: 20140530
  Receipt Date: 20150416
  Transmission Date: 20150821
  Serious: Yes (Death, Hospitalization, Other)
  Sender: FDA-Public Use
  Company Number: PHHY2014ML065467

PATIENT
  Age: 37 Year
  Sex: Female
  Weight: 78 kg

DRUGS (2)
  1. GLIVEC [Suspect]
     Active Substance: IMATINIB MESYLATE
     Indication: CHRONIC MYELOID LEUKAEMIA
     Dosage: 400 MG, QD (DAILY)
     Route: 048
     Dates: start: 20100819
  2. GLIVEC [Suspect]
     Active Substance: IMATINIB MESYLATE
     Dosage: 600 MG, QD (DAILY)
     Route: 048
     Dates: end: 20140320

REACTIONS (14)
  - Increased bronchial secretion [Fatal]
  - Haemoglobin decreased [Unknown]
  - Drug ineffective [Unknown]
  - Malaria [Fatal]
  - Pyrexia [Fatal]
  - Headache [Fatal]
  - Acute myeloid leukaemia [Fatal]
  - Dyspnoea exertional [Fatal]
  - Breast swelling [Unknown]
  - White blood cell count increased [Unknown]
  - Cough [Fatal]
  - Palpitations [Unknown]
  - Platelet count increased [Unknown]
  - Haemorrhage [Fatal]

NARRATIVE: CASE EVENT DATE: 20140415
